FAERS Safety Report 7265049-2 (Version None)
Quarter: 2011Q1

REPORT INFORMATION
  Report Type: 
  Country: None (occurrence: None)
  Receive Date: 20110131
  Receipt Date: 20110121
  Transmission Date: 20110831
  Serious: Yes (Other)
  Sender: FDA-Public Use
  Company Number: US-ASTELLAS-2011US000333

PATIENT

DRUGS (3)
  1. HYDROCHLOROTHIAZIDE [Concomitant]
     Indication: PRODUCT USED FOR UNKNOWN INDICATION
     Dosage: UNK
     Route: 065
  2. VIBATIV [Suspect]
     Indication: ACCIDENTAL EXPOSURE
     Dosage: UNK
     Route: 061
     Dates: start: 20110121, end: 20110121
  3. BIAXIN [Concomitant]
     Indication: SINUSITIS
     Dosage: UNK
     Route: 065

REACTIONS (7)
  - ERYTHEMA [None]
  - ACCIDENTAL EXPOSURE [None]
  - URTICARIA [None]
  - CHEST DISCOMFORT [None]
  - HYPERSENSITIVITY [None]
  - LIP SWELLING [None]
  - PRURITUS [None]
